FAERS Safety Report 18177388 (Version 1)
Quarter: 2020Q3

REPORT INFORMATION
  Report Type: Spontaneous
  Country: ES (occurrence: ES)
  Receive Date: 20200820
  Receipt Date: 20200820
  Transmission Date: 20201103
  Serious: Yes (Other)
  Sender: FDA-Public Use
  Company Number: ES-ASTRAZENECA-2020SF02325

PATIENT
  Age: 86 Year
  Sex: Female

DRUGS (2)
  1. SULFAMETOXAZOL/TRIMETOPRIM [Suspect]
     Active Substance: SULFAMETHOXAZOLE\TRIMETHOPRIM
     Indication: ANTIBIOTIC PROPHYLAXIS
     Dosage: 400/80MG /24H
     Route: 004
     Dates: start: 20191004, end: 20191004
  2. QUETIAPINA [Suspect]
     Active Substance: QUETIAPINE
     Indication: DISTURBANCE IN SOCIAL BEHAVIOUR
     Dosage: 25MG/24H
     Route: 048
     Dates: start: 20190930, end: 20191007

REACTIONS (1)
  - Hepatitis cholestatic [Recovered/Resolved]

NARRATIVE: CASE EVENT DATE: 20191007
